FAERS Safety Report 13433582 (Version 2)
Quarter: 2017Q2

REPORT INFORMATION
  Report Type: Spontaneous
  Country: US (occurrence: US)
  Receive Date: 20170412
  Receipt Date: 20170511
  Transmission Date: 20170830
  Serious: Yes (Other)
  Sender: FDA-Public Use
  Company Number: US-BAYER-2017-069275

PATIENT
  Age: 40 Year
  Sex: Female
  Weight: 84.35 kg

DRUGS (1)
  1. MIRENA [Suspect]
     Active Substance: LEVONORGESTREL
     Indication: MENORRHAGIA
     Dosage: 20 MCG/24HR, CONT
     Route: 015
     Dates: start: 20170119, end: 20170313

REACTIONS (1)
  - Embedded device [Recovered/Resolved]

NARRATIVE: CASE EVENT DATE: 20170313
